FAERS Safety Report 21724768 (Version 1)
Quarter: 2022Q4

REPORT INFORMATION
  Report Type: Spontaneous
  Country: US (occurrence: US)
  Receive Date: 20221214
  Receipt Date: 20221214
  Transmission Date: 20230113
  Serious: No
  Sender: FDA-Public Use
  Company Number: US-ELI_LILLY_AND_COMPANY-US202211009857

PATIENT
  Age: 79 Year
  Sex: Male

DRUGS (4)
  1. TRULICITY [Suspect]
     Active Substance: DULAGLUTIDE
     Indication: Glycosylated haemoglobin increased
     Dosage: 0.75 MG, UNKNOWN
     Route: 058
     Dates: start: 20220926
  2. TRULICITY [Suspect]
     Active Substance: DULAGLUTIDE
     Dosage: 1.5 MG, UNKNOWN
     Route: 058
  3. HUMALOG MIX75/25 [Concomitant]
     Active Substance: INSULIN LISPRO
     Indication: Glycosylated haemoglobin increased
     Dosage: UNK, DAILY
  4. HUMULIN N [Concomitant]
     Active Substance: INSULIN HUMAN
     Indication: Glycosylated haemoglobin increased
     Dosage: UNK, BID

REACTIONS (1)
  - Incorrect dose administered [Unknown]

NARRATIVE: CASE EVENT DATE: 20221114
